FAERS Safety Report 12770499 (Version 3)
Quarter: 2016Q4

REPORT INFORMATION
  Report Type: Spontaneous
  Country: JP (occurrence: JP)
  Receive Date: 20160922
  Receipt Date: 20161209
  Transmission Date: 20170207
  Serious: Yes (Death, Hospitalization)
  Sender: FDA-Public Use
  Company Number: PHJP2016JP026690

PATIENT
  Age: 81 Year
  Sex: Female
  Weight: 48 kg

DRUGS (15)
  1. MIYA-BM [Concomitant]
     Active Substance: CLOSTRIDIUM BUTYRICUM SPORES STRAIN M-55
     Indication: DIARRHOEA
     Dosage: 0.5 G, TID
     Route: 048
     Dates: end: 20160912
  2. AMANTADINE [Concomitant]
     Active Substance: AMANTADINE
     Indication: PARKINSON^S DISEASE
     Dosage: 50 MG, BID
     Route: 048
     Dates: end: 20160912
  3. MEROPENEM. [Concomitant]
     Active Substance: MEROPENEM
     Indication: INTERSTITIAL LUNG DISEASE
     Dosage: 0.5 G, TID
     Route: 041
     Dates: start: 20160910
  4. NEORAL [Suspect]
     Active Substance: CYCLOSPORINE
     Indication: PSORIASIS
     Dosage: 75 MG, BID
     Route: 048
     Dates: start: 20160910, end: 20160912
  5. DOPACOL [Concomitant]
     Active Substance: CARBIDOPA\LEVODOPA
     Indication: PARKINSON^S DISEASE
     Dosage: 500 MG, TID
     Route: 048
     Dates: end: 20160912
  6. THYRADIN-S [Concomitant]
     Active Substance: LEVOTHYROXINE
     Indication: HYPOTHYROIDISM
     Dosage: 50 MG, QD
     Route: 048
     Dates: end: 20160912
  7. WARFARIN [Concomitant]
     Active Substance: WARFARIN
     Indication: CEREBRAL INFARCTION
     Dosage: 2 MG, QD
     Route: 048
     Dates: start: 20160802, end: 20160912
  8. MOSAPRIDE [Concomitant]
     Active Substance: MOSAPRIDE
     Indication: CONSTIPATION
     Dosage: 5 MG, TID
     Route: 048
     Dates: end: 20160912
  9. PREDNISOLONE. [Concomitant]
     Active Substance: PREDNISOLONE
     Indication: INTERSTITIAL LUNG DISEASE
     Dosage: 50 MG, QD
     Route: 041
     Dates: start: 20160915
  10. PREDONINE [Concomitant]
     Active Substance: PREDNISOLONE\PREDNISOLONE ACETATE\PREDNISOLONE SODIUM SUCCINATE
     Indication: PRODUCT USED FOR UNKNOWN INDICATION
     Dosage: 30 MG, QD
     Route: 041
     Dates: start: 20160910
  11. CALFINA [Concomitant]
     Active Substance: ALFACALCIDOL
     Indication: OSTEOPOROSIS
     Dosage: 1 MG, QD
     Route: 048
     Dates: end: 20160912
  12. SULBACILLIN [Concomitant]
     Active Substance: AMPICILLIN SODIUM\SULBACTAM SODIUM
     Indication: INTERSTITIAL LUNG DISEASE
     Dosage: 3 G, TID
     Route: 041
     Dates: start: 20160907
  13. NEORAL [Suspect]
     Active Substance: CYCLOSPORINE
     Indication: INTERSTITIAL LUNG DISEASE
     Dosage: 150 MG, QD
     Route: 048
     Dates: start: 201505, end: 20160912
  14. DAIKENCHUTO [Concomitant]
     Active Substance: HERBALS
     Indication: CONSTIPATION
     Dosage: 25 G, TID
     Route: 048
     Dates: end: 20160912
  15. SOLU-MEDROL [Concomitant]
     Active Substance: METHYLPREDNISOLONE SODIUM SUCCINATE
     Indication: INTERSTITIAL LUNG DISEASE
     Dosage: 500 MG, QD
     Route: 041
     Dates: start: 20160912

REACTIONS (4)
  - Oral administration complication [Unknown]
  - Interstitial lung disease [Fatal]
  - Sputum retention [Fatal]
  - Product use issue [Fatal]

NARRATIVE: CASE EVENT DATE: 20160910
